FAERS Safety Report 7272933-2 (Version None)
Quarter: 2011Q1

REPORT INFORMATION
  Report Type: 
  Country: None (occurrence: None)
  Receive Date: 20110203
  Receipt Date: 20110201
  Transmission Date: 20110831
  Serious: Yes (Hospitalization)
  Sender: FDA-Public Use
  Company Number: A0731244A

PATIENT
  Age: 54 Year
  Sex: Male

DRUGS (5)
  1. METFORMIN [Concomitant]
  2. AVANDAMET [Suspect]
     Indication: DIABETES MELLITUS
     Route: 048
     Dates: start: 20041001, end: 20041201
  3. ZOCOR [Concomitant]
  4. NEXIUM [Concomitant]
  5. AVANDIA [Suspect]
     Dosage: 4MG PER DAY
     Route: 048
     Dates: start: 20040322, end: 20041001

REACTIONS (5)
  - STENT PLACEMENT [None]
  - CARDIAC FAILURE CONGESTIVE [None]
  - CORONARY ARTERY DISEASE [None]
  - MYOCARDIAL INFARCTION [None]
  - CARDIAC OPERATION [None]
